FAERS Safety Report 24330161 (Version 2)
Quarter: 2025Q1

REPORT INFORMATION
  Report Type: Spontaneous
  Country: PT (occurrence: PT)
  Receive Date: 20240917
  Receipt Date: 20250213
  Transmission Date: 20250409
  Serious: Yes (Death, Other)
  Sender: CHATTEM
  Company Number: PT-OPELLA-2024OHG031921

PATIENT

DRUGS (3)
  1. XYZAL [Suspect]
     Active Substance: LEVOCETIRIZINE DIHYDROCHLORIDE
     Indication: Product used for unknown indication
  2. SODIUM PICOSULFATE [Suspect]
     Active Substance: SODIUM PICOSULFATE
     Indication: Product used for unknown indication
  3. TAMSULOSIN HYDROCHLORIDE [Interacting]
     Active Substance: TAMSULOSIN HYDROCHLORIDE
     Indication: Product used for unknown indication

REACTIONS (9)
  - Fall [Fatal]
  - Head discomfort [Fatal]
  - Dizziness [Fatal]
  - Drug interaction [Fatal]
  - Pruritus [Fatal]
  - Somnolence [Fatal]
  - Myalgia [Fatal]
  - Chills [Fatal]
  - Photophobia [Fatal]
